FAERS Safety Report 16404163 (Version 2)
Quarter: 2019Q2

REPORT INFORMATION
  Report Type: Spontaneous
  Country: BR (occurrence: BR)
  Receive Date: 20190607
  Receipt Date: 20190628
  Transmission Date: 20190711
  Serious: Yes (Death, Other)
  Sender: FDA-Public Use
  Company Number: BR-SA-2019SA154411

PATIENT
  Age: 76 Year
  Sex: Male
  Weight: 64 kg

DRUGS (3)
  1. FASTURTEC [Suspect]
     Active Substance: RASBURICASE
     Indication: HYPERURICAEMIA
     Dosage: UNK, UNK
     Route: 042
     Dates: start: 20190205, end: 20190205
  2. IVERMECTIN. [Concomitant]
     Active Substance: IVERMECTIN
  3. FASTURTEC [Suspect]
     Active Substance: RASBURICASE
     Indication: TUMOUR LYSIS SYNDROME

REACTIONS (8)
  - Respiratory failure [Fatal]
  - Anuria [Fatal]
  - Blood urea increased [Fatal]
  - Hypoxia [Fatal]
  - Methaemoglobinaemia [Fatal]
  - Electrolyte imbalance [Fatal]
  - Metabolic acidosis [Fatal]
  - Glucose-6-phosphate dehydrogenase deficiency [Fatal]

NARRATIVE: CASE EVENT DATE: 20190205
